FAERS Safety Report 5028588-0 (Version None)
Quarter: 2006Q2

REPORT INFORMATION
  Report Type: 
  Country: None (occurrence: None)
  Receive Date: 20060615
  Receipt Date: 20060615
  Transmission Date: 20061013
  Serious: No
  Sender: FDA-Public Use
  Company Number: None

PATIENT
  Sex: Male
  Weight: 66.6788 kg

DRUGS (4)
  1. OXYCONTIN [Suspect]
     Indication: END STAGE AIDS
     Dosage: ONE TABLET  BID  PO
     Route: 048
     Dates: start: 20060604, end: 20060608
  2. OXYCONTIN [Suspect]
     Indication: PANCREATITIS CHRONIC
     Dosage: ONE TABLET  BID  PO
     Route: 048
     Dates: start: 20060604, end: 20060608
  3. OXYCONTIN [Suspect]
     Indication: END STAGE AIDS
     Dosage: ONE TABLET   BID   PO
     Route: 048
     Dates: start: 20060604, end: 20060608
  4. OXYCONTIN [Suspect]
     Indication: PANCREATITIS CHRONIC
     Dosage: ONE TABLET   BID   PO
     Route: 048
     Dates: start: 20060604, end: 20060608

REACTIONS (3)
  - PHARMACEUTICAL PRODUCT COMPLAINT [None]
  - RASH ERYTHEMATOUS [None]
  - RASH PRURITIC [None]
